FAERS Safety Report 20709140 (Version 3)
Quarter: 2022Q2

REPORT INFORMATION
  Report Type: Spontaneous
  Country: US (occurrence: US)
  Receive Date: 20220414
  Receipt Date: 20220429
  Transmission Date: 20220721
  Serious: Yes (Other)
  Sender: FDA-Public Use
  Company Number: US-AUROBINDO-AUR-APL-2022-011673

PATIENT
  Age: 7 Year
  Sex: Male

DRUGS (2)
  1. AMOXICILLIN\CLAVULANATE POTASSIUM [Suspect]
     Active Substance: AMOXICILLIN\CLAVULANATE POTASSIUM
     Indication: Product used for unknown indication
     Dosage: 600 MILLIGRAM PER MILLILITRE
     Route: 048
     Dates: start: 20220324
  2. AMOXICILLIN\CLAVULANATE POTASSIUM [Suspect]
     Active Substance: AMOXICILLIN\CLAVULANATE POTASSIUM
     Dosage: 7.5 MILLILITER, TWO TIMES A DAY  (ONE AND HALF SPOON)
     Route: 065

REACTIONS (3)
  - Product contamination microbial [Unknown]
  - Vomiting [Unknown]
  - Product taste abnormal [Unknown]
